FAERS Safety Report 8806801 (Version 2)
Quarter: 2012Q4

REPORT INFORMATION
  Report Type: 
  Country: US (occurrence: US)
  Receive Date: 20120925
  Receipt Date: 20121214
  Transmission Date: 20130627
  Serious: Yes (Other)
  Sender: FDA-Public Use
  Company Number: US-BAYER-2012-099331

PATIENT
  Age: 22 Year
  Sex: Female
  Weight: 119.27 kg

DRUGS (2)
  1. MIRENA [Suspect]
     Indication: CONTRACEPTION
     Dosage: 20 mcg/24hr, CONT
     Route: 015
     Dates: start: 20120814, end: 20120919
  2. MIRENA [Suspect]
     Indication: CONTRACEPTION

REACTIONS (4)
  - Vaginal haemorrhage [None]
  - Pelvic pain [None]
  - Device expulsion [Recovered/Resolved]
  - Abdominal pain lower [None]
